FAERS Safety Report 11641482 (Version 4)
Quarter: 2016Q2

REPORT INFORMATION
  Report Type: Report from Study
  Country: KR (occurrence: KR)
  Receive Date: 20151019
  Receipt Date: 20160506
  Transmission Date: 20160815
  Serious: Yes (Death, Hospitalization, Other)
  Sender: FDA-Public Use
  Company Number: PHHO2015KR010722

PATIENT
  Age: 57 Year
  Sex: Female
  Weight: 47 kg

DRUGS (6)
  1. TRAMADOL. [Concomitant]
     Active Substance: TRAMADOL
     Indication: PROPHYLAXIS
     Dosage: 50 MG
     Route: 065
  2. INSULIN [Concomitant]
     Active Substance: INSULIN NOS
     Indication: PROPHYLAXIS
     Dosage: 12 IU
     Route: 058
     Dates: start: 20150617
  3. BETHANECHOL [Concomitant]
     Active Substance: BETHANECHOL
     Indication: PROPHYLAXIS
     Dosage: 100 MG
     Route: 065
     Dates: start: 20150617
  4. PREGABALIN. [Concomitant]
     Active Substance: PREGABALIN
     Indication: NEUROPATHY PERIPHERAL
     Dosage: 300 MG
     Route: 065
     Dates: start: 20150617
  5. CEFEPIME [Concomitant]
     Active Substance: CEFEPIME HYDROCHLORIDE
     Indication: PROPHYLAXIS
     Dosage: 6 G
     Route: 065
     Dates: start: 20150617
  6. LDK378 [Suspect]
     Active Substance: CERITINIB
     Indication: NON-SMALL CELL LUNG CANCER
     Dosage: 600 MG
     Route: 048
     Dates: start: 20150217, end: 20150720

REACTIONS (4)
  - Cholangitis [Not Recovered/Not Resolved]
  - Non-small cell lung cancer [Fatal]
  - Urinary tract infection [Not Recovered/Not Resolved]
  - Pneumonia [Not Recovered/Not Resolved]

NARRATIVE: CASE EVENT DATE: 20150610
